FAERS Safety Report 8583705-0 (Version None)
Quarter: 2012Q3

REPORT INFORMATION
  Report Type: 
  Country: None (occurrence: None)
  Receive Date: 20120809
  Receipt Date: 20120717
  Transmission Date: 20120928
  Serious: Yes (Hospitalization, Other)
  Sender: FDA-Public Use
  Company Number: US-009507513-2012SP000191

PATIENT

DRUGS (1)
  1. NUVARING [Suspect]
     Indication: CONTRACEPTION
     Dates: start: 20071201, end: 20090128

REACTIONS (21)
  - CERVICAL DYSPLASIA [None]
  - CARDIAC MURMUR [None]
  - PULMONARY EMBOLISM [None]
  - POSTPARTUM DEPRESSION [None]
  - MIGRAINE [None]
  - WRIST FRACTURE [None]
  - MUSCULAR WEAKNESS [None]
  - SUICIDAL IDEATION [None]
  - MAJOR DEPRESSION [None]
  - SUICIDE ATTEMPT [None]
  - MENORRHAGIA [None]
  - CERVICITIS HUMAN PAPILLOMA VIRUS [None]
  - SEASONAL ALLERGY [None]
  - HEADACHE [None]
  - UPPER RESPIRATORY TRACT INFECTION [None]
  - BRONCHITIS [None]
  - SPLENIC CYST [None]
  - DEPRESSION [None]
  - CERVICITIS [None]
  - POST-TRAUMATIC STRESS DISORDER [None]
  - ABDOMINAL PAIN LOWER [None]
